FAERS Safety Report 8724201 (Version 2)
Quarter: 2012Q4

REPORT INFORMATION
  Report Type: 
  Country: US (occurrence: US)
  Receive Date: 20120815
  Receipt Date: 20120919
  Transmission Date: 20130627
  Serious: Yes (Other)
  Sender: FDA-Public Use
  Company Number: US-PFIZER INC-2012194774

PATIENT
  Age: 34 Year
  Sex: Female

DRUGS (8)
  1. LYRICA [Suspect]
     Dosage: 100 mg, 2x/day
  2. LYRICA [Suspect]
     Dosage: 150 mg, UNK
     Route: 048
  3. FLEXERIL [Concomitant]
     Dosage: 10 mg, UNK
     Route: 048
  4. DILAUDID [Concomitant]
     Dosage: 4 mg, UNK
     Route: 048
  5. NAPROSYN [Concomitant]
     Dosage: 500 mg, UNK
     Route: 048
  6. PAMELOR [Concomitant]
     Dosage: 25 mg, UNK
     Route: 048
  7. ZOMIG [Concomitant]
     Dosage: 5 mg, UNK
     Route: 048
  8. AMBIEN [Concomitant]
     Dosage: 10 mg, UNK
     Route: 048

REACTIONS (4)
  - Road traffic accident [Unknown]
  - Joint injury [Unknown]
  - Musculoskeletal pain [Unknown]
  - Hypoaesthesia [Unknown]
